FAERS Safety Report 14368401 (Version 1)
Quarter: 2018Q1

REPORT INFORMATION
  Report Type: Spontaneous
  Country: US (occurrence: US)
  Receive Date: 20180109
  Receipt Date: 20180109
  Transmission Date: 20180509
  Serious: No
  Sender: FDA-Public Use
  Company Number: US-MYLANLABS-2017M1078308

PATIENT
  Sex: Female

DRUGS (1)
  1. EXTINA [Suspect]
     Active Substance: KETOCONAZOLE
     Indication: DERMATITIS
     Dosage: UNK
     Route: 061

REACTIONS (2)
  - No adverse event [Unknown]
  - Expired product administered [Unknown]
